FAERS Safety Report 4960473-2 (Version None)
Quarter: 2006Q2

REPORT INFORMATION
  Report Type: 
  Country: None (occurrence: None)
  Receive Date: 20060403
  Receipt Date: 20060323
  Transmission Date: 20061013
  Serious: Yes (Other)
  Sender: FDA-Public Use
  Company Number: PHEH2006US03924

PATIENT
  Age: 61 Year
  Sex: Female
  Weight: 68.48 kg

DRUGS (5)
  1. ZELNORM [Suspect]
     Dosage: 6 MG, BID
     Route: 048
  2. CYMBALTA [Concomitant]
  3. TRIAMTERENE AND HYDROCHLOROTHIAZID ^HARRIS^ [Concomitant]
  4. CLONOPIN [Concomitant]
  5. LEVSIN [Concomitant]
     Dosage: UNK, PRN

REACTIONS (7)
  - ABDOMINAL PAIN [None]
  - CHILLS [None]
  - COLITIS ISCHAEMIC [None]
  - HAEMATOCHEZIA [None]
  - MUCOSAL INFLAMMATION [None]
  - PYREXIA [None]
  - WHITE BLOOD CELL COUNT INCREASED [None]
